FAERS Safety Report 7135396-3 (Version None)
Quarter: 2010Q4

REPORT INFORMATION
  Report Type: 
  Country: None (occurrence: None)
  Receive Date: 20101203
  Receipt Date: 20101118
  Transmission Date: 20110411
  Serious: Yes (Hospitalization)
  Sender: FDA-Public Use
  Company Number: US-ELI_LILLY_AND_COMPANY-US201010005375

PATIENT
  Sex: Female
  Weight: 103 kg

DRUGS (11)
  1. PRASUGREL HYDROCHLORIDE [Suspect]
     Indication: ACUTE CORONARY SYNDROME
     Dosage: 10 MG, DAILY (1/D)
     Dates: start: 20100529
  2. ASPIRIN [Concomitant]
     Indication: PRODUCT USED FOR UNKNOWN INDICATION
     Dosage: 325 MG, DAILY (1/D)
  3. ATIVAN [Concomitant]
     Indication: ANXIETY
     Dosage: 1.5 MG, 3/D
     Route: 048
     Dates: start: 20081001
  4. CALCIUM [Concomitant]
     Indication: SUPPLEMENTATION THERAPY
     Dosage: 500 MG, DAILY (1/D)
     Route: 048
     Dates: start: 20081001
  5. VITAMIN D [Concomitant]
     Indication: SUPPLEMENTATION THERAPY
     Dosage: 125 MG, DAILY (1/D)
     Route: 048
     Dates: start: 20081001
  6. FLAXSEED OIL [Concomitant]
     Indication: HYPERLIPIDAEMIA
     Dosage: 1 OTHER, DAILY (1/D)
     Route: 048
     Dates: start: 20080501
  7. NIASPAN [Concomitant]
     Indication: HYPERLIPIDAEMIA
     Dosage: 500 MG, DAILY (1/D)
     Route: 048
     Dates: start: 20100501
  8. OMEPRAZOLE [Concomitant]
     Indication: GASTROOESOPHAGEAL REFLUX DISEASE
     Dosage: 20 MG, DAILY (1/D)
     Route: 048
     Dates: start: 20100501
  9. REQUIP [Concomitant]
     Indication: RESTLESS LEGS SYNDROME
     Dosage: 1 MG, DAILY (1/D)
     Route: 048
     Dates: start: 20100501
  10. NITROGLYCERIN [Concomitant]
     Indication: ANGINA PECTORIS
     Dosage: 0.4 MG, AS NEEDED
     Route: 060
     Dates: start: 20100501
  11. TRILIPIX [Concomitant]
     Indication: HYPERLIPIDAEMIA
     Dosage: 135 MG, DAILY (1/D)
     Route: 048
     Dates: start: 20100501

REACTIONS (1)
  - ANGINA UNSTABLE [None]
